FAERS Safety Report 24900634 (Version 4)
Quarter: 2025Q1

REPORT INFORMATION
  Report Type: Report from Study
  Country: JP (occurrence: JP)
  Receive Date: 20250129
  Receipt Date: 20250227
  Transmission Date: 20250409
  Serious: Yes (Hospitalization)
  Sender: RADIUS PHARM
  Company Number: JP-RADIUS HEALTH INC.-2025JP000694

PATIENT
  Age: 84 Year
  Sex: Female

DRUGS (2)
  1. ABALOPARATIDE [Suspect]
     Active Substance: ABALOPARATIDE
     Indication: Product used for unknown indication
     Route: 058
     Dates: start: 20241111, end: 202501
  2. ABALOPARATIDE [Suspect]
     Active Substance: ABALOPARATIDE
     Route: 058
     Dates: start: 2025

REACTIONS (5)
  - Pneumonia [Unknown]
  - Gastroenteritis [Unknown]
  - Physical deconditioning [Recovering/Resolving]
  - Pyrexia [Recovering/Resolving]
  - Asthenia [Recovering/Resolving]

NARRATIVE: CASE EVENT DATE: 20250101
